FAERS Safety Report 7269368-5 (Version None)
Quarter: 2011Q1

REPORT INFORMATION
  Report Type: 
  Country: None (occurrence: None)
  Receive Date: 20110119
  Receipt Date: 20110112
  Transmission Date: 20110831
  Serious: Yes (Other)
  Sender: FDA-Public Use
  Company Number: 2010022064

PATIENT
  Sex: Male
  Weight: 79.3795 kg

DRUGS (5)
  1. METFORMIN HCL [Concomitant]
  2. SPIRIVA [Concomitant]
  3. ZEMAIRA [Suspect]
     Dosage: 4945 MG, 4945 MG AT A RATE OF 6.36 ML/MIN INTRAVENOUS (NOT OTHERWISE SPECIFIED)
     Route: 042
     Dates: start: 20100118
  4. ADVAIR DISKUS 100/50 [Concomitant]
  5. ALBUTEROL MDI (SALBUTAMOL) [Concomitant]

REACTIONS (4)
  - BACK PAIN [None]
  - NEUROPATHY PERIPHERAL [None]
  - INFUSION RELATED REACTION [None]
  - MOVEMENT DISORDER [None]
